FAERS Safety Report 5829528-4 (Version None)
Quarter: 2008Q3

REPORT INFORMATION
  Report Type: 
  Country: None (occurrence: None)
  Receive Date: 20080731
  Receipt Date: 20080723
  Transmission Date: 20090109
  Serious: Yes (Life-Threatening, Hospitalization, Other)
  Sender: FDA-Public Use
  Company Number: GB-PFIZER INC-2008025761

PATIENT
  Sex: Male

DRUGS (9)
  1. ATORVASTATIN [Interacting]
     Route: 048
  2. FUCIDINE CAP [Interacting]
     Indication: INFECTION
  3. EZETIMIBE [Suspect]
     Route: 048
     Dates: start: 20031124, end: 20071201
  4. ATENIX [Concomitant]
  5. ESOMEPRAZOLE [Concomitant]
  6. ACETYLSALICYLIC ACID SRT [Concomitant]
  7. IMIGRAN [Concomitant]
  8. PARACETAMOL [Concomitant]
     Dosage: TEXT:2 TABLETS-FREQ:4 TIMES DAILY
  9. TRAMADOL HCL [Concomitant]

REACTIONS (12)
  - ACUTE CORONARY SYNDROME [None]
  - DEVICE RELATED INFECTION [None]
  - DIARRHOEA [None]
  - DRUG INTERACTION [None]
  - LIVER DISORDER [None]
  - MIGRAINE [None]
  - MULTI-ORGAN FAILURE [None]
  - MUSCULAR WEAKNESS [None]
  - OSTEOARTHRITIS [None]
  - PNEUMONIA [None]
  - RENAL FAILURE ACUTE [None]
  - RHABDOMYOLYSIS [None]
